FAERS Safety Report 25817921 (Version 1)
Quarter: 2025Q3

REPORT INFORMATION
  Report Type: Spontaneous
  Country: US (occurrence: US)
  Receive Date: 20250918
  Receipt Date: 20250918
  Transmission Date: 20251021
  Serious: No
  Sender: NOVARTIS
  Company Number: US-002147023-NVSC2025US141795

PATIENT
  Sex: Female

DRUGS (2)
  1. MEKINIST [Suspect]
     Active Substance: TRAMETINIB DIMETHYL SULFOXIDE
     Indication: Congenital musculoskeletal disorder of limbs
     Dosage: 0.5 MG, QD
     Route: 048
     Dates: start: 202508
  2. MEKINIST [Suspect]
     Active Substance: TRAMETINIB DIMETHYL SULFOXIDE
     Route: 065

REACTIONS (3)
  - Acne [Unknown]
  - Incorrect dose administered [Unknown]
  - Off label use [Unknown]
